FAERS Safety Report 4553171-0 (Version None)
Quarter: 2005Q1

REPORT INFORMATION
  Report Type: 
  Country: None (occurrence: None)
  Receive Date: 20050114
  Receipt Date: 20050105
  Transmission Date: 20050727
  Serious: Yes (Death)
  Sender: FDA-Public Use
  Company Number: US-JNJFOC-20030704126

PATIENT
  Sex: Female

DRUGS (1)
  1. REMINYL [Suspect]
     Route: 049

REACTIONS (1)
  - PNEUMONIA [None]
